FAERS Safety Report 20762958 (Version 1)
Quarter: 2022Q2

REPORT INFORMATION
  Report Type: Report from Study
  Country: US (occurrence: US)
  Receive Date: 20220428
  Receipt Date: 20220428
  Transmission Date: 20220721
  Serious: No
  Sender: FDA-Public Use
  Company Number: US-NOVARTISTESTPH-NVSC2022US098347

PATIENT
  Sex: Male

DRUGS (1)
  1. ENTRESTO [Suspect]
     Active Substance: SACUBITRIL\VALSARTAN
     Indication: Product used for unknown indication
     Dosage: 24.26 MG, BID
     Route: 065

REACTIONS (9)
  - Accident [Unknown]
  - Malaise [Unknown]
  - Sleep disorder [Unknown]
  - Eating disorder [Unknown]
  - Injury [Unknown]
  - Emotional disorder [Unknown]
  - Hypotension [Unknown]
  - Blood pressure decreased [Unknown]
  - Cough [Unknown]
